FAERS Safety Report 8069607-7 (Version None)
Quarter: 2012Q1

REPORT INFORMATION
  Report Type: 
  Country: None (occurrence: None)
  Receive Date: 20120125
  Receipt Date: 20120120
  Transmission Date: 20120608
  Serious: No
  Sender: FDA-Public Use
  Company Number: US-BAYER-2012-007630

PATIENT
  Age: 75 Year
  Sex: Male
  Weight: 111 kg

DRUGS (4)
  1. SEIZURE PILL [Concomitant]
  2. ALEVE (CAPLET) [Suspect]
     Dosage: UNK
     Route: 048
     Dates: start: 20120116, end: 20120118
  3. ACETYLSALICYLIC ACID SRT [Concomitant]
  4. HIGH BLOOD PRESSURE PILL [Concomitant]

REACTIONS (1)
  - RASH [None]
